FAERS Safety Report 5509720-9 (Version None)
Quarter: 2007Q4

REPORT INFORMATION
  Report Type: 
  Country: None (occurrence: None)
  Receive Date: 20071108
  Receipt Date: 20071106
  Transmission Date: 20080405
  Serious: Yes (Hospitalization)
  Sender: FDA-Public Use
  Company Number: FR-ELI_LILLY_AND_COMPANY-FR200710005518

PATIENT
  Sex: Male
  Weight: 115 kg

DRUGS (6)
  1. ZYPREXA [Suspect]
     Indication: SCHIZOPHRENIA
     Dosage: 10 MG, DAILY (1/D)
     Route: 048
     Dates: start: 20020101
  2. OXAZEPAM [Concomitant]
     Dosage: 30 MG, DAILY (1/D)
     Route: 048
  3. EFFEXOR [Concomitant]
     Indication: ANXIETY
     Dosage: 75 MG, DAILY (1/D)
     Route: 048
     Dates: start: 20050101, end: 20071020
  4. VALSARTAN [Concomitant]
     Dosage: 160 MG, DAILY (1/D)
     Route: 048
  5. PRAVASTATIN [Concomitant]
     Indication: HYPERCHOLESTEROLAEMIA
     Dosage: 20 MG, DAILY (1/D)
     Route: 048
  6. ASPIRIN [Concomitant]
     Dosage: 75 MG, DAILY (1/D)
     Route: 048

REACTIONS (3)
  - LEUKOPENIA [None]
  - MYELOPROLIFERATIVE DISORDER [None]
  - NEUTROPENIA [None]
